FAERS Safety Report 7918492-X (Version None)
Quarter: 2011Q4

REPORT INFORMATION
  Report Type: 
  Country: None (occurrence: None)
  Receive Date: 20111116
  Receipt Date: 20111026
  Transmission Date: 20120403
  Serious: No
  Sender: FDA-Public Use
  Company Number: US-COVIDIEN/TYCO HEALTHCARE/MALLINCKRODT-T201101731

PATIENT
  Sex: Female
  Weight: 50.34 kg

DRUGS (7)
  1. FENTANYL [Concomitant]
     Dosage: UNK
     Dates: start: 20050101, end: 20110601
  2. TIZANIDINE HCL [Concomitant]
     Dosage: 2 MG, Q HS
  3. LEVOTHYROXINE SODIUM [Concomitant]
     Indication: OEDEMA PERIPHERAL
     Dosage: UNK
  4. PREMARIN [Concomitant]
     Dosage: UNK
  5. FENTANYL-100 [Suspect]
     Indication: BACK PAIN
     Dosage: 75 UG/HR, Q 3 DAYS
     Route: 062
     Dates: start: 20110101
  6. OXYCODONE HCL [Concomitant]
     Indication: PAIN
     Dosage: 5 MG, QD
  7. NEURONTIN [Concomitant]
     Dosage: 400 MG, QD

REACTIONS (4)
  - DYSKINESIA [None]
  - SOMNOLENCE [None]
  - AGITATION [None]
  - DRUG EFFECT DELAYED [None]
